FAERS Safety Report 24555610 (Version 1)
Quarter: 2024Q4

REPORT INFORMATION
  Report Type: Spontaneous
  Country: AT (occurrence: AT)
  Receive Date: 20241028
  Receipt Date: 20241028
  Transmission Date: 20250115
  Serious: Yes (Other)
  Sender: AMGEN
  Company Number: AT-AMGEN-AUTSP2024208562

PATIENT
  Age: 55 Year
  Sex: Male

DRUGS (4)
  1. LUMAKRAS [Suspect]
     Active Substance: SOTORASIB
     Indication: Non-small cell lung cancer
     Dosage: 960 MILLIGRAM
     Route: 065
     Dates: start: 202306, end: 2023
  2. LUMAKRAS [Suspect]
     Active Substance: SOTORASIB
     Dosage: 480 MILLIGRAM (HALF DOSE 4-0-0)
     Route: 065
     Dates: start: 2023, end: 2023
  3. LUMAKRAS [Suspect]
     Active Substance: SOTORASIB
     Dosage: 480 MILLIGRAM (HALF DOSE 4-0-0), STARTED AGAIN
     Route: 065
     Dates: start: 2023, end: 2023
  4. LUMAKRAS [Suspect]
     Active Substance: SOTORASIB
     Dosage: UNK, INCREASE TO 6-0-0 FOR 2 MONTHS
     Route: 065
     Dates: start: 2023, end: 202401

REACTIONS (2)
  - Non-small cell lung cancer [Unknown]
  - Diarrhoea [Unknown]

NARRATIVE: CASE EVENT DATE: 20230101
